FAERS Safety Report 4512098-0 (Version None)
Quarter: 2004Q4

REPORT INFORMATION
  Report Type: 
  Country: None (occurrence: None)
  Receive Date: 20041123
  Receipt Date: 20041110
  Transmission Date: 20050328
  Serious: Yes (Hospitalization)
  Sender: FDA-Public Use
  Company Number: F01200403552

PATIENT
  Age: 63 Year
  Sex: Female

DRUGS (14)
  1. OXALIPLATIN [Suspect]
     Indication: COLORECTAL CANCER METASTATIC
     Dosage: 153 MG Q2W
     Route: 042
  2. FLUOROURACIL [Suspect]
     Dosage: 720 MG IV BOLUS AND 1080 IV CONTINUOUS INFUSION, Q2W
     Route: 042
  3. (LEUCOVORIN) - SOLUTIOIN - 360 MG [Suspect]
     Dosage: 360 MG Q2W
     Route: 042
  4. (BEVACIZUMAB OR PLACEBO) - SOLUTION - 420 MG [Suspect]
     Dosage: 420 MG Q2W
     Route: 042
  5. SYNTHROID [Concomitant]
  6. ZOCOR [Concomitant]
  7. MULTI-VITAMINS [Concomitant]
  8. ZOFRAN [Concomitant]
  9. NUPERCAINAL (DIBUCAINE) [Concomitant]
  10. EMPRACET (PARACETAMOL) [Concomitant]
  11. HEPARINE (HEPARIN SODIUM) [Concomitant]
  12. COLACE (DOCUSATE SODIUM) [Concomitant]
  13. CALCIUM [Concomitant]
  14. MILES MAGIC MOUTHWASH SUSPENSION (DIPHENHYDRAMINE HCL/HYDROCORTISONE/N [Concomitant]

REACTIONS (2)
  - CEREBROVASCULAR ACCIDENT [None]
  - TRANSIENT ISCHAEMIC ATTACK [None]
